FAERS Safety Report 6433297-7 (Version None)
Quarter: 2009Q4

REPORT INFORMATION
  Report Type: 
  Country: None (occurrence: None)
  Receive Date: 20091109
  Receipt Date: 20091030
  Transmission Date: 20100525
  Serious: Yes (Other)
  Sender: FDA-Public Use
  Company Number: GB-ABBOTT-09P-167-0575604-00

PATIENT
  Sex: Female

DRUGS (1)
  1. HUMIRA [Suspect]
     Indication: DRUG EXPOSURE DURING PREGNANCY
     Route: 064

REACTIONS (5)
  - DRUG EXPOSURE DURING PREGNANCY [None]
  - LACTOSE INTOLERANCE [None]
  - PREMATURE BABY [None]
  - THYROID DISORDER [None]
  - TURNER'S SYNDROME [None]
